FAERS Safety Report 4901156-4 (Version None)
Quarter: 2006Q1

REPORT INFORMATION
  Report Type: 
  Country: None (occurrence: None)
  Receive Date: 20060201
  Receipt Date: 20060117
  Transmission Date: 20060701
  Serious: Yes (Disabling)
  Sender: FDA-Public Use
  Company Number: US200601001749

PATIENT
  Age: 65 Year
  Sex: Male

DRUGS (5)
  1. GEMZAR [Suspect]
     Indication: NON-SMALL CELL LUNG CANCER
  2. CARDIZEM [Concomitant]
  3. MEGACE [Concomitant]
  4. COMPAZINE [Concomitant]
  5. ATIVAN [Concomitant]

REACTIONS (1)
  - BLINDNESS UNILATERAL [None]
